FAERS Safety Report 16056759 (Version 1)
Quarter: 2019Q2

REPORT INFORMATION
  Report Type: Spontaneous
  Country: US (occurrence: US)
  Receive Date: 20190310
  Receipt Date: 20190310
  Transmission Date: 20190711
  Serious: Yes (Other)
  Sender: FDA-Public Use
  Company Number: None

PATIENT
  Age: 75 Year
  Sex: Male
  Weight: 63 kg

DRUGS (1)
  1. AZELASTINE HCI [Suspect]
     Active Substance: AZELASTINE HYDROCHLORIDE
     Indication: NASAL CONGESTION
     Dosage: ?          OTHER STRENGTH:MCG;OTHER ROUTE:NASAL SPRAY?

REACTIONS (2)
  - Oral infection [None]
  - Osteomyelitis [None]

NARRATIVE: CASE EVENT DATE: 20190215
